FAERS Safety Report 25270617 (Version 2)
Quarter: 2025Q2

REPORT INFORMATION
  Report Type: Spontaneous
  Country: US (occurrence: None)
  Receive Date: 20250505
  Receipt Date: 20250513
  Transmission Date: 20250717
  Serious: Yes (Other)
  Sender: INCYTE
  Company Number: US-002147023-NVSC2025US067337

PATIENT
  Age: 12 Year

DRUGS (8)
  1. JAKAFI [Suspect]
     Active Substance: RUXOLITINIB
     Indication: Failure to thrive
     Dosage: 5 MG, QD (MG/M2)
     Route: 065
  2. JAKAFI [Suspect]
     Active Substance: RUXOLITINIB
     Indication: Rash
     Dosage: 5 MG, BID (MG/M2)
     Route: 065
  3. JAKAFI [Suspect]
     Active Substance: RUXOLITINIB
     Indication: Iritis
  4. JAKAFI [Suspect]
     Active Substance: RUXOLITINIB
     Indication: Subarachnoid haemorrhage
  5. JAKAFI [Suspect]
     Active Substance: RUXOLITINIB
     Indication: Immune system disorder
  6. PREDNISONE [Concomitant]
     Active Substance: PREDNISONE
     Indication: Product used for unknown indication
     Route: 065
  7. IMMUNE GLOBULIN NOS [Concomitant]
     Active Substance: IMMUNE GLOBULIN NOS
     Indication: Product used for unknown indication
  8. METHOTREXATE [Concomitant]
     Active Substance: METHOTREXATE
     Indication: Product used for unknown indication
     Route: 065

REACTIONS (3)
  - Herpes zoster [Unknown]
  - Drug effective for unapproved indication [Unknown]
  - Off label use [Unknown]
